FAERS Safety Report 5016198-0 (Version None)
Quarter: 2006Q2

REPORT INFORMATION
  Report Type: 
  Country: None (occurrence: None)
  Receive Date: 20060414
  Receipt Date: 20060127
  Transmission Date: 20061013
  Serious: No
  Sender: FDA-Public Use
  Company Number: 2006SP000497

PATIENT
  Age: 75 Year
  Sex: Female
  Weight: 58.9676 kg

DRUGS (3)
  1. LUNESTA [Suspect]
     Indication: INSOMNIA
     Dosage: 3 MG HS ORAL
     Route: 048
     Dates: start: 20060124, end: 20060124
  2. PRILOSEC [Concomitant]
  3. VITAMINS [Concomitant]

REACTIONS (4)
  - DIZZINESS [None]
  - DYSGEUSIA [None]
  - HALLUCINATION [None]
  - INSOMNIA [None]
